FAERS Safety Report 6485066-X (Version None)
Quarter: 2009Q4

REPORT INFORMATION
  Report Type: 
  Country: None (occurrence: None)
  Receive Date: 20091209
  Receipt Date: 20090610
  Transmission Date: 20100525
  Serious: No
  Sender: FDA-Public Use
  Company Number: US-AMGEN-KDL351051

PATIENT
  Sex: Female

DRUGS (3)
  1. ENBREL [Suspect]
     Indication: RHEUMATOID ARTHRITIS
     Route: 058
     Dates: start: 20060909
  2. HUMIRA [Concomitant]
  3. REMICADE [Concomitant]

REACTIONS (5)
  - CYSTITIS [None]
  - EYE INFECTION [None]
  - HYPOAESTHESIA ORAL [None]
  - PAIN [None]
  - PARAESTHESIA [None]
